FAERS Safety Report 7519936-8 (Version None)
Quarter: 2011Q2

REPORT INFORMATION
  Report Type: 
  Country: None (occurrence: None)
  Receive Date: 20110602
  Receipt Date: 20110523
  Transmission Date: 20111010
  Serious: Yes (Death, Hospitalization)
  Sender: FDA-Public Use
  Company Number: JP-ACTELION-A-CH2011-48082

PATIENT
  Sex: Male
  Weight: 55 kg

DRUGS (9)
  1. OMEPRAZOLE [Concomitant]
  2. MOSAPRIDE CITRATE [Concomitant]
  3. LIMAPROST ALFADEX [Concomitant]
  4. TRACLEER [Suspect]
     Indication: PULMONARY ARTERIAL HYPERTENSION
     Dosage: 31.25 MG, BID
     Route: 048
     Dates: start: 20110221, end: 20110309
  5. OXYGEN [Concomitant]
  6. ASPIRIN [Concomitant]
  7. REBAMIPIDE [Concomitant]
  8. PREDNISOLONE [Concomitant]
  9. EPINASTINE HYDROCHLORIDE [Concomitant]

REACTIONS (8)
  - ASPARTATE AMINOTRANSFERASE INCREASED [None]
  - LIVER DISORDER [None]
  - BLOOD BILIRUBIN ABNORMAL [None]
  - DYSPHAGIA [None]
  - PNEUMONIA ASPIRATION [None]
  - BLOOD ALKALINE PHOSPHATASE ABNORMAL [None]
  - ALANINE AMINOTRANSFERASE INCREASED [None]
  - GAMMA-GLUTAMYLTRANSFERASE INCREASED [None]
